FAERS Safety Report 23861062 (Version 2)
Quarter: 2024Q3

REPORT INFORMATION
  Report Type: Spontaneous
  Country: CA (occurrence: CA)
  Receive Date: 20240516
  Receipt Date: 20240927
  Transmission Date: 20241016
  Serious: Yes (Other)
  Sender: SANDOZ
  Company Number: CA-SANDOZ-SDZ2024CA037659

PATIENT
  Sex: Male

DRUGS (1)
  1. HYRIMOZ [Suspect]
     Active Substance: ADALIMUMAB-ADAZ
     Indication: Ankylosing spondylitis
     Dosage: 40 MG, Q2W
     Route: 058
     Dates: start: 20230704

REACTIONS (6)
  - Retinal detachment [Unknown]
  - Muscle rupture [Unknown]
  - Irritable bowel syndrome [Recovering/Resolving]
  - Arthralgia [Unknown]
  - Neuralgia [Unknown]
  - Psoriasis [Recovered/Resolved]
